FAERS Safety Report 24255113 (Version 1)
Quarter: 2024Q3

REPORT INFORMATION
  Report Type: Spontaneous
  Country: US (occurrence: None)
  Receive Date: 20240823
  Receipt Date: 20240823
  Transmission Date: 20241016
  Serious: Yes (Other)
  Sender: Public
  Company Number: None

PATIENT
  Sex: Male

DRUGS (1)
  1. DYSPORT [Suspect]
     Active Substance: ABOBOTULINUMTOXINA

REACTIONS (5)
  - Wrong technique in product usage process [None]
  - Product preparation issue [None]
  - Drug monitoring procedure not performed [None]
  - Facial spasm [None]
  - Circumstance or information capable of leading to medication error [None]
